FAERS Safety Report 4371807-4 (Version None)
Quarter: 2004Q2

REPORT INFORMATION
  Report Type: 
  Country: None (occurrence: None)
  Receive Date: 20040601
  Receipt Date: 20040517
  Transmission Date: 20050107
  Serious: Yes (Hospitalization)
  Sender: FDA-Public Use
  Company Number: 2004-BP-03509BP

PATIENT
  Age: 77 Year
  Sex: Female

DRUGS (3)
  1. CLONIDINE [Suspect]
     Indication: HYPERTENSION
     Dosage: 0.2 MG (0.1 MG, 0.1 MG BID), PO
     Route: 048
     Dates: start: 20040401
  2. NORVASC [Concomitant]
  3. SINEMET [Concomitant]

REACTIONS (1)
  - VERTIGO [None]
